FAERS Safety Report 6127305-0 (Version None)
Quarter: 2009Q1

REPORT INFORMATION
  Report Type: 
  Country: None (occurrence: None)
  Receive Date: 20090319
  Receipt Date: 20090309
  Transmission Date: 20090719
  Serious: Yes (Other)
  Sender: FDA-Public Use
  Company Number: 2009AP000991

PATIENT
  Sex: Female

DRUGS (1)
  1. OXCARBAZEPINE [Suspect]
     Indication: TRIGEMINAL NEURALGIA
     Dosage: PO
     Route: 048

REACTIONS (4)
  - EXOPHTHALMOS [None]
  - OEDEMA MOUTH [None]
  - PRURITUS [None]
  - RASH [None]
